FAERS Safety Report 14571908 (Version 2)
Quarter: 2018Q1

REPORT INFORMATION
  Report Type: Spontaneous
  Country: DE (occurrence: DE)
  Receive Date: 20180226
  Receipt Date: 20180301
  Transmission Date: 20180509
  Serious: Yes (Hospitalization)
  Sender: FDA-Public Use
  Company Number: PHHY2018DE029435

PATIENT
  Age: 62 Year
  Sex: Male
  Weight: 59 kg

DRUGS (13)
  1. VENETOCLAX. [Suspect]
     Active Substance: VENETOCLAX
     Indication: PLASMA CELL MYELOMA
     Dosage: 1 OT, QD
     Route: 048
     Dates: start: 20161121, end: 20161124
  2. VENETOCLAX. [Suspect]
     Active Substance: VENETOCLAX
     Dosage: 1 OT, QD
     Route: 048
     Dates: start: 20161212, end: 20161218
  3. BORTEZOMIB [Suspect]
     Active Substance: BORTEZOMIB
     Indication: PLASMA CELL MYELOMA
     Dosage: 1.3 MG/M2, DAY 1, 4, 8, 11
     Route: 058
     Dates: start: 20161121, end: 20161215
  4. VENETOCLAX. [Suspect]
     Active Substance: VENETOCLAX
     Dosage: 1 OT, QD
     Route: 048
     Dates: start: 20161126, end: 20161211
  5. METOCLOPRAMIDE. [Concomitant]
     Active Substance: METOCLOPRAMIDE
     Indication: PROPHYLAXIS OF NAUSEA AND VOMITING
     Dosage: 20 MG, PRN
     Route: 048
     Dates: start: 20161121
  6. URBASON [Concomitant]
     Active Substance: METHYLPREDNISOLONE
     Indication: RASH
     Dosage: 4 MG, QD
     Route: 048
     Dates: start: 201408
  7. DEXAMETHASONE. [Suspect]
     Active Substance: DEXAMETHASONE
     Indication: PLASMA CELL MYELOMA
     Dosage: 20 MG, PRN (QD)
     Route: 048
     Dates: start: 20161121, end: 20161216
  8. PANTOPRAZOLE SODIUM. [Concomitant]
     Active Substance: PANTOPRAZOLE SODIUM
     Indication: PROPHYLAXIS AGAINST GASTROINTESTINAL ULCER
     Dosage: 40 MG, QD
     Route: 048
     Dates: start: 20141117
  9. VENETOCLAX. [Suspect]
     Active Substance: VENETOCLAX
     Dosage: 1 OT, QD
     Route: 048
     Dates: start: 20170109
  10. ACICLOVIR [Concomitant]
     Active Substance: ACYCLOVIR
     Indication: ANTIVIRAL PROPHYLAXIS
     Dosage: 800 MG, QD (400 MG, BID)
     Route: 048
     Dates: start: 20161121
  11. PANTOPRAZOLE SODIUM. [Concomitant]
     Active Substance: PANTOPRAZOLE SODIUM
     Indication: GASTROINTESTINAL DISORDER THERAPY
  12. ACICLOVIR [Concomitant]
     Active Substance: ACYCLOVIR
     Indication: VIRAL INFECTION
  13. VIGANTOLETTEN [Concomitant]
     Active Substance: CHOLECALCIFEROL
     Indication: VITAMIN SUPPLEMENTATION
     Dosage: 1000 IU, QD
     Route: 048
     Dates: start: 20141117

REACTIONS (1)
  - Pneumonia bacterial [Recovered/Resolved]

NARRATIVE: CASE EVENT DATE: 20161219
